FAERS Safety Report 4388153-5 (Version None)
Quarter: 2004Q2

REPORT INFORMATION
  Report Type: 
  Country: None (occurrence: None)
  Receive Date: 20040625
  Receipt Date: 20040617
  Transmission Date: 20050107
  Serious: Yes (Hospitalization)
  Sender: FDA-Public Use
  Company Number: US-SHR-03-016927

PATIENT
  Age: 19 Year
  Sex: Female
  Weight: 63.5 kg

DRUGS (5)
  1. MIRENA [Suspect]
     Indication: CONTRACEPTION
     Dosage: 20 UG/DAY, CONT, ITNRA-UTERINE
     Route: 015
     Dates: start: 20030828, end: 20031101
  2. ALBUTEROL [Concomitant]
  3. CLARITIN [Concomitant]
  4. PROTONIX [Concomitant]
  5. KLONOPIN [Concomitant]

REACTIONS (6)
  - ANOREXIA NERVOSA [None]
  - DEHYDRATION [None]
  - MENORRHAGIA [None]
  - NAUSEA [None]
  - VOMITING [None]
  - WEIGHT DECREASED [None]
